FAERS Safety Report 9644730 (Version 1)
Quarter: 2013Q4

REPORT INFORMATION
  Report Type: Spontaneous
  Country: US (occurrence: None)
  Receive Date: 20131023
  Receipt Date: 20131023
  Transmission Date: 20140711
  Serious: No
  Sender: FDA-Public Use
  Company Number: None

PATIENT
  Age: 36 Year
  Sex: Female
  Weight: 56.7 kg

DRUGS (1)
  1. ZOFRAN [Suspect]
     Indication: HYPEREMESIS GRAVIDARUM
     Dosage: 3/DAY
     Route: 048
     Dates: start: 20130701, end: 20131022

REACTIONS (3)
  - Heart rate irregular [None]
  - Exposure during pregnancy [None]
  - Dizziness [None]
